FAERS Safety Report 8257452-9 (Version None)
Quarter: 2012Q1

REPORT INFORMATION
  Report Type: 
  Country: None (occurrence: None)
  Receive Date: 20120330
  Receipt Date: 20120330
  Transmission Date: 20120608
  Serious: Yes (Other)
  Sender: FDA-Public Use
  Company Number: None

PATIENT
  Sex: Female
  Weight: 45.3597 kg

DRUGS (1)
  1. SUCRALFATE [Suspect]
     Indication: ERUCTATION
     Dosage: 1 GM 4 TIMES DAILY TOOK ONLY 3 TABLETS
     Dates: start: 20111226

REACTIONS (7)
  - HEADACHE [None]
  - ABDOMINAL PAIN [None]
  - BODY TEMPERATURE DECREASED [None]
  - CHILLS [None]
  - AMNESIA [None]
  - BALANCE DISORDER [None]
  - BLOOD PRESSURE INCREASED [None]
